FAERS Safety Report 9248380 (Version 1)
Quarter: 2013Q1

REPORT INFORMATION
  Report Type: Spontaneous
  Country: US (occurrence: None)
  Receive Date: 20130303
  Receipt Date: 20130303
  Transmission Date: 20140127
  Serious: Yes (Hospitalization)
  Sender: FDA-Public Use
  Company Number: 163-21880-12060784 (0)

PATIENT
  Age: 69 Year
  Sex: Female
  Weight: 71.67 kg

DRUGS (11)
  1. REVLIMID [Suspect]
     Indication: PLASMA CELL MYELOMA
     Dosage: 25 MG, DAILY FOR 21 DAYS, PO
     Route: 048
     Dates: start: 20100107
  2. AMLODIPINE (AMLODIPINE) [Concomitant]
  3. ASPIRIN [Concomitant]
  4. DEXAMETHASONE (DEXAMETHASONE) [Concomitant]
  5. CALTRATE (CALCIUM CARBONATE) [Concomitant]
  6. GABAPENTIN (GABAPENTIN) [Concomitant]
  7. LOVASTATIN (LOVASTATIN) [Concomitant]
  8. METOPROLOL (METOPROLOL) [Concomitant]
  9. ORACEA (DOXYCYCLINE) [Concomitant]
  10. VICODIN (VICODIN) [Concomitant]
  11. ZYLOPRIM (ALLOPURINOL) [Concomitant]

REACTIONS (4)
  - Nausea [None]
  - Asthenia [None]
  - Tremor [None]
  - Diverticulitis [None]
